FAERS Safety Report 4447048-9 (Version None)
Quarter: 2004Q3

REPORT INFORMATION
  Report Type: 
  Country: None (occurrence: None)
  Receive Date: 20040812
  Receipt Date: 20040426
  Transmission Date: 20050211
  Serious: No
  Sender: FDA-Public Use
  Company Number: US_0403101607

PATIENT
  Age: 72 Year
  Sex: Male
  Weight: 92 kg

DRUGS (13)
  1. CIALIS [Suspect]
     Indication: ERECTILE DYSFUNCTION
     Dosage: 20 MG/1 DAY
     Dates: start: 20040310
  2. DIABETA (GLIBECLAMIDE) [Concomitant]
  3. ZOCOR [Concomitant]
  4. ACCUPRIL [Concomitant]
  5. TENORMIN [Concomitant]
  6. NIFEDIPINE [Concomitant]
  7. HYDROXYCHLOROQUINE SULFATE [Concomitant]
  8. PERCOCET [Concomitant]
  9. HYDROCHLOROTHIAZIDE [Concomitant]
  10. TAGAMET [Concomitant]
  11. HALCION [Concomitant]
  12. QUININE SULFATE [Concomitant]
  13. LISINOPRIL [Concomitant]

REACTIONS (2)
  - DRUG INEFFECTIVE [None]
  - INTENTIONAL OVERDOSE [None]
